FAERS Safety Report 9388393 (Version 1)
Quarter: 2013Q3

REPORT INFORMATION
  Report Type: Spontaneous
  Country: US (occurrence: US)
  Receive Date: 20130708
  Receipt Date: 20130708
  Transmission Date: 20140515
  Serious: No
  Sender: FDA-Public Use
  Company Number: US-009507513-1307USA003280

PATIENT
  Age: 15 Year
  Sex: Male
  Weight: 65.76 kg

DRUGS (1)
  1. DR. SCHOLLS CORN REMOVERS [Suspect]
     Indication: HYPERKERATOSIS
     Dosage: 2 DF, QOD
     Route: 061
     Dates: start: 20130523, end: 20130527

REACTIONS (2)
  - Application site erosion [Unknown]
  - Wrong technique in drug usage process [Unknown]
